FAERS Safety Report 5490014-5 (Version None)
Quarter: 2007Q4

REPORT INFORMATION
  Report Type: 
  Country: None (occurrence: None)
  Receive Date: 20071018
  Receipt Date: 20071009
  Transmission Date: 20080405
  Serious: Yes (Congenital Anomaly, Other)
  Sender: FDA-Public Use
  Company Number: GB-ABBOTT-06P-167-0342680-00

PATIENT
  Sex: Male
  Weight: 1.82 kg

DRUGS (2)
  1. KALETRA [Suspect]
     Indication: DRUG EXPOSURE DURING PREGNANCY
     Dosage: SIX CAPSULES DAILY
     Dates: start: 20060327
  2. LAMIVUDINE + ZIDOVUDINE [Suspect]
     Indication: DRUG EXPOSURE DURING PREGNANCY
     Dosage: TWO TABLETS DAILY
     Dates: start: 20060327

REACTIONS (5)
  - CONGENITAL GASTRIC ANOMALY [None]
  - GASTRIC DISORDER [None]
  - OESOPHAGEAL ATRESIA [None]
  - TRISOMY 18 [None]
  - VENTRICULAR SEPTAL DEFECT [None]
